FAERS Safety Report 10639830 (Version 4)
Quarter: 2017Q2

REPORT INFORMATION
  Report Type: Spontaneous
  Country: IT (occurrence: IT)
  Receive Date: 20141209
  Receipt Date: 20170627
  Transmission Date: 20170829
  Serious: Yes (Hospitalization)
  Sender: FDA-Public Use
  Company Number: IT-AUROBINDO-AUR-APL-2014-12853

PATIENT
  Age: 9 Year
  Sex: Male
  Weight: 33 kg

DRUGS (4)
  1. ACICLOVIR [Suspect]
     Active Substance: ACYCLOVIR
     Dosage: 50 ML, FOR 3 DAILY (350 MG IN SALINE SOLUTION)
     Route: 042
  2. ACICLOVIR [Suspect]
     Active Substance: ACYCLOVIR
     Indication: ORAL HERPES
     Dosage: 30 ML, DAILY
     Route: 048
     Dates: start: 20141108, end: 20141115
  3. ACICLOVIR [Suspect]
     Active Substance: ACYCLOVIR
     Dosage: UNK
     Route: 065
     Dates: start: 20141118
  4. NUROFEN FEBRE E DOLORE [Suspect]
     Active Substance: IBUPROFEN
     Indication: PYREXIA
     Dosage: 30 ML, DAILY
     Route: 065
     Dates: start: 20141108, end: 20141113

REACTIONS (13)
  - Oral herpes [Recovered/Resolved]
  - Rash maculo-papular [Recovered/Resolved]
  - Central venous pressure abnormal [Recovered/Resolved]
  - Scab [Recovered/Resolved]
  - Lip haemorrhage [Recovered/Resolved]
  - Rash [Recovered/Resolved]
  - Erythema multiforme [Recovered/Resolved]
  - Tongue coated [Recovered/Resolved]
  - Skin lesion [Recovered/Resolved]
  - Herpes simplex [Recovered/Resolved]
  - Erythema [Recovered/Resolved]
  - Blister [Recovered/Resolved]
  - Stomatitis [Recovered/Resolved]

NARRATIVE: CASE EVENT DATE: 20141116
